FAERS Safety Report 9457696 (Version 2)
Quarter: 2013Q4

REPORT INFORMATION
  Report Type: Spontaneous
  Country: IT (occurrence: IT)
  Receive Date: 20130814
  Receipt Date: 20131105
  Transmission Date: 20140711
  Serious: Yes (Hospitalization)
  Sender: FDA-Public Use
  Company Number: IT-TEVA-423074ISR

PATIENT
  Age: 18 Year
  Sex: Female
  Weight: 71 kg

DRUGS (5)
  1. VINCRISTINA TEVA [Suspect]
     Indication: RHABDOMYOSARCOMA
     Dosage: 2 MILLIGRAM DAILY;
     Route: 041
     Dates: start: 20130423, end: 20130606
  2. ADRIBLASTINA [Concomitant]
     Indication: RHABDOMYOSARCOMA
     Dosage: 54 MILLIGRAM DAILY;
     Route: 041
     Dates: start: 20130423, end: 20130606
  3. HOLOXAN [Concomitant]
     Indication: RHABDOMYOSARCOMA
     Dosage: 5400 MILLIGRAM DAILY;
     Route: 041
     Dates: start: 20130423, end: 20130606
  4. COSMEGEN [Concomitant]
     Indication: RHABDOMYOSARCOMA
     Dosage: 2 MILLIGRAM DAILY; POWDER FOR INJECTABLE SOLUTION
     Route: 041
     Dates: start: 20130423, end: 20130606
  5. ZOFRAN [Concomitant]
     Indication: PROPHYLAXIS OF NAUSEA AND VOMITING
     Dosage: 8 MILLIGRAM DAILY;
     Route: 041
     Dates: start: 20130423, end: 20130606

REACTIONS (1)
  - Demyelinating polyneuropathy [Not Recovered/Not Resolved]
